FAERS Safety Report 17735253 (Version 1)
Quarter: 2020Q2

REPORT INFORMATION
  Report Type: Spontaneous
  Country: US (occurrence: US)
  Receive Date: 20200501
  Receipt Date: 20200501
  Transmission Date: 20200714
  Serious: No
  Sender: FDA-Public Use
  Company Number: US-TEVA-2020-US-1228060

PATIENT

DRUGS (1)
  1. TEVA BUPRENORPHINE [Suspect]
     Active Substance: BUPRENORPHINE
     Dosage: STRENGTH 10 MCG\HR
     Route: 062

REACTIONS (2)
  - Product adhesion issue [Unknown]
  - Pain [Unknown]
